FAERS Safety Report 6198064-0 (Version None)
Quarter: 2009Q2

REPORT INFORMATION
  Report Type: 
  Country: None (occurrence: None)
  Receive Date: 20090521
  Receipt Date: 20090512
  Transmission Date: 20091009
  Serious: Yes (Disabling, Other)
  Sender: FDA-Public Use
  Company Number: CO-ELI_LILLY_AND_COMPANY-CO200905002696

PATIENT
  Age: 64 Year
  Sex: Male

DRUGS (4)
  1. HUMULIN N [Suspect]
     Indication: TYPE 2 DIABETES MELLITUS
     Dosage: 20 IU, EACH MORNING
     Route: 058
     Dates: start: 20080801
  2. HUMULIN N [Suspect]
     Dosage: 15 UNK, EACH EVENING
     Route: 058
     Dates: start: 20080801
  3. GLIBENCLAMIDE [Concomitant]
     Indication: TYPE 2 DIABETES MELLITUS
     Dosage: UNK, UNKNOWN
     Route: 065
  4. METFORMIN HCL [Concomitant]
     Dosage: UNK, UNKNOWN
     Route: 065

REACTIONS (5)
  - DIABETIC RETINOPATHY [None]
  - DIPLOPIA [None]
  - INJECTION SITE HAEMORRHAGE [None]
  - STRABISMUS [None]
  - TINNITUS [None]
